FAERS Safety Report 7200072-5 (Version None)
Quarter: 2010Q4

REPORT INFORMATION
  Report Type: 
  Country: None (occurrence: None)
  Receive Date: 20101215
  Receipt Date: 20101202
  Transmission Date: 20110411
  Serious: Yes (Life-Threatening, Other)
  Sender: FDA-Public Use
  Company Number: AVE_01613_2010

PATIENT
  Sex: Male

DRUGS (7)
  1. CLONIDINE [Suspect]
     Indication: HYPERTENSION
     Dosage: 1 DF QD, VIA 1/WEEKY PATCH TRANSDERMAL, 0.3 MG QD, VIA 1/WEEKLY PATCH TRANSDERMAL
     Route: 062
     Dates: start: 20091201
  2. CLONIDINE [Suspect]
  3. LIPITOR [Concomitant]
  4. SYNTHROID [Concomitant]
  5. FUROSEMIDE [Concomitant]
  6. BYSTOLIC [Concomitant]
  7. CATAPRES-TTS-1 [Concomitant]

REACTIONS (8)
  - BRADYCARDIA [None]
  - HYPOTENSION [None]
  - INCORRECT DOSE ADMINISTERED [None]
  - PRODUCT ADHESION ISSUE [None]
  - PRODUCT QUALITY ISSUE [None]
  - PRODUCT SUBSTITUTION ISSUE [None]
  - TREATMENT NONCOMPLIANCE [None]
  - WITHDRAWAL HYPERTENSION [None]
